FAERS Safety Report 24938050 (Version 1)
Quarter: 2025Q1

REPORT INFORMATION
  Report Type: Spontaneous
  Country: US (occurrence: US)
  Receive Date: 20250206
  Receipt Date: 20250206
  Transmission Date: 20250408
  Serious: Yes (Hospitalization, Other)
  Sender: JOHNSON AND JOHNSON
  Company Number: US-JNJFOC-20250184925

PATIENT

DRUGS (2)
  1. TALVEY [Suspect]
     Active Substance: TALQUETAMAB-TGVS
     Indication: Plasma cell myeloma
     Dates: start: 20241219
  2. TALVEY [Suspect]
     Active Substance: TALQUETAMAB-TGVS
     Dates: start: 20241221

REACTIONS (2)
  - Cytokine release syndrome [Unknown]
  - Hyperglycaemia [Unknown]
